FAERS Safety Report 20785515 (Version 1)
Quarter: 2022Q2

REPORT INFORMATION
  Report Type: Spontaneous
  Country: US (occurrence: None)
  Receive Date: 20220504
  Receipt Date: 20220504
  Transmission Date: 20220720
  Serious: No
  Sender: FDA-Public Use
  Company Number: US-ROCHE-2854856

PATIENT

DRUGS (8)
  1. OCREVUS [Suspect]
     Active Substance: OCRELIZUMAB
     Indication: Product used for unknown indication
     Dosage: 300MG (ONCE WAS GIVEN THE 600MG) ;ONGOING: UNKNOWN
     Route: 065
     Dates: start: 201905
  2. VITAMIN D3 [Concomitant]
     Active Substance: CHOLECALCIFEROL
  3. TIZANIDINE [Concomitant]
     Active Substance: TIZANIDINE
     Dosage: 1/2 TWICE A DAY AND WHOLE PILL AT BED
  4. TOPIRAMATE [Concomitant]
     Active Substance: TOPIRAMATE
     Dosage: 1 TABLET TWICE A DAY
  5. OXYBUTYNIN [Concomitant]
     Active Substance: OXYBUTYNIN
     Dosage: ER 10MG 1 TABLET DAILY FOR BLADDER
  6. DULOXETINE [Concomitant]
     Active Substance: DULOXETINE
     Dosage: 60MG 1 CAPSULE IN MORNING
  7. DULOXETINE [Concomitant]
     Active Substance: DULOXETINE
     Dosage: 30MG 1 CAPSULE AT BEDTIME
  8. BUDESONIDE [Concomitant]
     Active Substance: BUDESONIDE
     Dosage: 3 CAPSULES AT ONCE DAILY FOR BOWELS FOR A MONTH

REACTIONS (6)
  - Headache [Unknown]
  - Vision blurred [Unknown]
  - Balance disorder [Unknown]
  - Hypoaesthesia [Unknown]
  - Paraesthesia [Unknown]
  - Tremor [Unknown]
